FAERS Safety Report 17215823 (Version 2)
Quarter: 2020Q2

REPORT INFORMATION
  Report Type: Report from Study
  Country: CA (occurrence: CA)
  Receive Date: 20191230
  Receipt Date: 20200421
  Transmission Date: 20200713
  Serious: Yes (Other)
  Sender: FDA-Public Use
  Company Number: PHHY2015CA034832

PATIENT
  Age: 40 Year
  Sex: Male

DRUGS (7)
  1. MOMETASONE FUROATE. [Suspect]
     Active Substance: MOMETASONE FUROATE
     Indication: SINUSITIS
     Dosage: UNK
     Route: 065
  2. SYNTHROID [Concomitant]
     Active Substance: LEVOTHYROXINE SODIUM
     Indication: PRODUCT USED FOR UNKNOWN INDICATION
     Dosage: 212 UG, QD
     Route: 048
  3. SANDOSTATIN LAR DEPOT [Suspect]
     Active Substance: OCTREOTIDE ACETATE
     Indication: ACROMEGALY
     Dosage: 20 MG EVERY FOUR WEEKS
     Route: 030
     Dates: start: 20150218, end: 20150921
  4. VITAMIN D [Suspect]
     Active Substance: VITAMIN D NOS
     Indication: PRODUCT USED FOR UNKNOWN INDICATION
     Dosage: 1000 IU, UNK
     Route: 048
  5. SANDOSTATIN LAR DEPOT [Suspect]
     Active Substance: OCTREOTIDE ACETATE
     Dosage: 30 MG, QMO
     Route: 030
     Dates: start: 20161019
  6. SYNTHROID [Concomitant]
     Active Substance: LEVOTHYROXINE SODIUM
     Dosage: 0.225 MG, UNK
     Route: 065
     Dates: start: 20190110
  7. CREON [Concomitant]
     Active Substance: PANCRELIPASE AMYLASE\PANCRELIPASE LIPASE\PANCRELIPASE PROTEASE
     Indication: PRODUCT USED FOR UNKNOWN INDICATION
     Dosage: UNK UNK, QD
     Route: 048

REACTIONS (24)
  - Abdominal pain [Recovering/Resolving]
  - Bronchitis [Unknown]
  - Otitis externa [Unknown]
  - Dyspepsia [Recovering/Resolving]
  - Hyperhidrosis [Unknown]
  - Eye irritation [Unknown]
  - Hypoglycaemia [Unknown]
  - Abdominal pain upper [Recovering/Resolving]
  - Tremor [Unknown]
  - Hunger [Unknown]
  - Abdominal discomfort [Unknown]
  - Sinusitis [Unknown]
  - Malaise [Unknown]
  - Ear infection [Unknown]
  - Cough [Unknown]
  - Nasopharyngitis [Unknown]
  - Body temperature decreased [Unknown]
  - Ocular hyperaemia [Unknown]
  - Dizziness [Unknown]
  - Pneumonia [Unknown]
  - Pulmonary congestion [Unknown]
  - Hypoaesthesia [Recovering/Resolving]
  - Asthenia [Recovering/Resolving]
  - Headache [Unknown]

NARRATIVE: CASE EVENT DATE: 201502
